FAERS Safety Report 7946867-1 (Version None)
Quarter: 2011Q4

REPORT INFORMATION
  Report Type: 
  Country: None (occurrence: None)
  Receive Date: 20111129
  Receipt Date: 20111123
  Transmission Date: 20120403
  Serious: Yes (Hospitalization, Other)
  Sender: FDA-Public Use
  Company Number: PHHO2011AT12294

PATIENT
  Sex: Female
  Weight: 50.9 kg

DRUGS (4)
  1. PREDNISOLONE [Concomitant]
     Indication: RENAL TRANSPLANT
     Dosage: 20 U PRN, BID
     Route: 048
     Dates: start: 20110315, end: 20110714
  2. MYFORTIC [Suspect]
     Indication: RENAL TRANSPLANT
     Dosage: 20 U PRN, BID
     Route: 048
     Dates: start: 20110315, end: 20110714
  3. PREDNISOLONE [Concomitant]
     Dosage: UNK
     Dates: start: 20110716
  4. CERTICAN [Suspect]
     Indication: RENAL TRANSPLANT
     Dosage: 20 U PRN, BID
     Route: 048
     Dates: start: 20110622, end: 20110714

REACTIONS (5)
  - PYREXIA [None]
  - LEUKOPENIA [None]
  - STOMATITIS [None]
  - NEUTROPENIA [None]
  - GINGIVITIS [None]
